FAERS Safety Report 4308750-2 (Version None)
Quarter: 2004Q1

REPORT INFORMATION
  Report Type: 
  Country: None (occurrence: None)
  Receive Date: 20040227
  Receipt Date: 20040219
  Transmission Date: 20041129
  Serious: Yes (Death)
  Sender: FDA-Public Use
  Company Number: 2004-02-1419

PATIENT
  Age: 44 Year
  Sex: Male

DRUGS (2)
  1. PEG-INTRON [Suspect]
     Indication: HEPATITIS C
     Dosage: 150 MCG QW
     Dates: start: 20021008
  2. REBETOL [Suspect]
     Indication: HEPATITIS C
     Dosage: 1000 MG QD
     Dates: start: 20021008

REACTIONS (2)
  - PERITONITIS BACTERIAL [None]
  - WHITE BLOOD CELL COUNT DECREASED [None]
